FAERS Safety Report 6837429-8 (Version None)
Quarter: 2010Q3

REPORT INFORMATION
  Report Type: 
  Country: None (occurrence: None)
  Receive Date: 20100713
  Receipt Date: 20070513
  Transmission Date: 20110219
  Serious: No
  Sender: FDA-Public Use
  Company Number: US-PFIZER INC-2007039353

PATIENT
  Sex: Male
  Weight: 86.363 kg

DRUGS (16)
  1. CHANTIX [Suspect]
     Indication: SMOKING CESSATION THERAPY
     Route: 048
     Dates: start: 20070401
  2. POTASSIUM CHLORIDE [Concomitant]
  3. GABAPENTIN [Concomitant]
  4. EFFEXOR [Concomitant]
  5. MAXZIDE [Concomitant]
  6. THEOPHYLLINE [Concomitant]
  7. MIRALAX [Concomitant]
  8. ACCOLATE [Concomitant]
  9. EVISTA [Concomitant]
  10. CALCIUM [Concomitant]
  11. VISTARIL [Concomitant]
  12. ZELNORM [Concomitant]
  13. XANAX [Concomitant]
  14. NEULASTA [Concomitant]
  15. SPIRIVA [Concomitant]
  16. ADVAIR DISKUS 100/50 [Concomitant]

REACTIONS (1)
  - RASH [None]
